FAERS Safety Report 25982538 (Version 1)
Quarter: 2025Q4

REPORT INFORMATION
  Report Type: Report from Study
  Country: US (occurrence: US)
  Receive Date: 20251031
  Receipt Date: 20251031
  Transmission Date: 20260117
  Serious: Yes (Other)
  Sender: JOHNSON AND JOHNSON
  Company Number: US-JNJFOC-20251035670

PATIENT
  Age: 20 Year
  Sex: Male

DRUGS (5)
  1. SPRAVATO [Suspect]
     Active Substance: ESKETAMINE
     Indication: Depression
     Dosage: ?84 MG, 2 TOTAL DOSES?
     Route: 045
     Dates: start: 20251016, end: 20251020
  2. SPRAVATO [Suspect]
     Active Substance: ESKETAMINE
     Dosage: ?84 MG, 1 TOTAL DOSES?
     Route: 045
     Dates: start: 20251023, end: 20251023
  3. SPRAVATO [Suspect]
     Active Substance: ESKETAMINE
     Dosage: ?56 MG, 1 TOTAL DOSES?
     Route: 045
     Dates: start: 20251009, end: 20251009
  4. RITALIN [Concomitant]
     Active Substance: METHYLPHENIDATE HYDROCHLORIDE
     Indication: Product used for unknown indication
     Dosage: DAILY
     Route: 065
  5. CLONIDINE [Concomitant]
     Active Substance: CLONIDINE
     Indication: Product used for unknown indication
     Dosage: HS (AT BEDTIME)
     Route: 065

REACTIONS (2)
  - Respiratory depression [Recovered/Resolved]
  - Sedation [Recovered/Resolved]

NARRATIVE: CASE EVENT DATE: 20251023
